FAERS Safety Report 4505641-9 (Version None)
Quarter: 2004Q4

REPORT INFORMATION
  Report Type: 
  Country: None (occurrence: None)
  Receive Date: 20041018
  Receipt Date: 20040726
  Transmission Date: 20050328
  Serious: No
  Sender: FDA-Public Use
  Company Number: 207826

PATIENT
  Age: 57 Year
  Sex: Male
  Weight: 81 kg

DRUGS (7)
  1. XOLAIR [Suspect]
     Indication: ASTHMA
     Dosage: 300 MG, Q4W, SUBCUTANEOUS
     Route: 058
     Dates: start: 20040408
  2. VASOTEC [Concomitant]
  3. PROVENTIL (ALBUTEROL, ALBUTEROL SULFATE) [Concomitant]
  4. PREVACID [Concomitant]
  5. ADVAIR (FLUTICASONE PROPIONATE, SALMETEROL XINAFOATE) [Concomitant]
  6. FLONASE [Concomitant]
  7. CLARITIN [Concomitant]

REACTIONS (1)
  - DISTURBANCE IN ATTENTION [None]
